FAERS Safety Report 12097948 (Version 1)
Quarter: 2016Q1

REPORT INFORMATION
  Report Type: Other
  Country: US (occurrence: US)
  Receive Date: 20160221
  Receipt Date: 20160221
  Transmission Date: 20160526
  Serious: No
  Sender: FDA-Public Use
  Company Number: US-ACORDA-ACO_111623_2015

PATIENT
  Sex: Female

DRUGS (3)
  1. AMPYRA [Suspect]
     Active Substance: DALFAMPRIDINE
     Indication: PRODUCT USED FOR UNKNOWN INDICATION
     Dosage: 10 MG, Q 12 HRS
     Route: 048
     Dates: start: 2011
  2. AMPYRA [Suspect]
     Active Substance: DALFAMPRIDINE
     Dosage: 10MG, BID
     Route: 048
  3. AMPYRA [Suspect]
     Active Substance: DALFAMPRIDINE
     Dosage: 10 MG AM AND 1/2 TABLET PM
     Route: 048

REACTIONS (4)
  - Insomnia [Recovered/Resolved]
  - Drug prescribing error [Unknown]
  - Wrong technique in product usage process [Unknown]
  - Drug dose omission [Unknown]

NARRATIVE: CASE EVENT DATE: 2011
